FAERS Safety Report 4996232-4 (Version None)
Quarter: 2006Q2

REPORT INFORMATION
  Report Type: 
  Country: None (occurrence: None)
  Receive Date: 20060505
  Receipt Date: 20060425
  Transmission Date: 20061013
  Serious: Yes (Hospitalization)
  Sender: FDA-Public Use
  Company Number: SE-2006-010178

PATIENT
  Age: 79 Year
  Sex: Female

DRUGS (2)
  1. SOTALOL HYDROCHLORIDE [Suspect]
  2. DIURETICS () [Suspect]

REACTIONS (2)
  - DRUG INTERACTION [None]
  - VERTIGO [None]
